FAERS Safety Report 8327067-2 (Version None)
Quarter: 2012Q2

REPORT INFORMATION
  Report Type: 
  Country: None (occurrence: None)
  Receive Date: 20120501
  Receipt Date: 20120426
  Transmission Date: 20120825
  Serious: Yes (Life-Threatening, Other)
  Sender: FDA-Public Use
  Company Number: TN-ABBOTT-12P-160-0930290-00

PATIENT
  Age: 5 Year
  Sex: Male

DRUGS (5)
  1. PROPOFOL [Concomitant]
     Indication: INDUCTION OF ANAESTHESIA
     Route: 042
  2. SUCCINYLCHOLINE CHLORIDE [Concomitant]
     Indication: INDUCTION OF ANAESTHESIA
     Route: 042
  3. SEVOFLURANE [Suspect]
     Indication: ANAESTHESIA
     Route: 055
  4. FENTANYL-100 [Concomitant]
     Indication: ANAESTHESIA
     Route: 042
  5. AMOXICILLIN AND CLAVULANATE POTASSIUM [Concomitant]
     Indication: PRODUCT USED FOR UNKNOWN INDICATION
     Route: 042

REACTIONS (2)
  - HYPERTHERMIA MALIGNANT [None]
  - RHABDOMYOLYSIS [None]
